FAERS Safety Report 8962332 (Version 1)
Quarter: 2012Q4

REPORT INFORMATION
  Report Type: Spontaneous
  Country: US (occurrence: None)
  Receive Date: 20121211
  Receipt Date: 20121211
  Transmission Date: 20130627
  Serious: Yes (Life-Threatening)
  Sender: FDA-Public Use
  Company Number: None

PATIENT
  Sex: Female
  Weight: 72.58 kg

DRUGS (9)
  1. DUONEB [Suspect]
     Indication: EMPHYSEMA
     Dosage: one vial Q 8 hours Nebulizer
     Dates: start: 201208, end: 201211
  2. ESKALITH [Concomitant]
  3. RISPERDAL [Concomitant]
  4. COGENTIN [Concomitant]
  5. SYNTHROID [Concomitant]
  6. LOVASTATIN [Concomitant]
  7. COMBIVENT [Concomitant]
  8. ADVAIR [Concomitant]
  9. PRILOSEC [Concomitant]

REACTIONS (5)
  - Cough [None]
  - Dyspnoea [None]
  - Muscle disorder [None]
  - Diaphragmatic disorder [None]
  - Dyspnoea [None]
